FAERS Safety Report 9035277 (Version 1)
Quarter: 2013Q1

REPORT INFORMATION
  Report Type: Report from Study
  Country: US (occurrence: US)
  Receive Date: 20130129
  Receipt Date: 20130129
  Transmission Date: 20140127
  Serious: No
  Sender: FDA-Public Use
  Company Number: US-ABBOTT-12P-163-0890978-00

PATIENT
  Sex: Male
  Weight: 77.18 kg

DRUGS (6)
  1. HUMIRA 40 MG/0.8 ML PEN [Suspect]
     Indication: CROHN^S DISEASE
     Dates: start: 20111219, end: 20111219
  2. HUMIRA 40 MG/0.8 ML PEN [Suspect]
     Dates: start: 20120102, end: 20120102
  3. LYRICA [Concomitant]
     Indication: FIBROMYALGIA
  4. VITAMIN D [Concomitant]
     Indication: VITAMIN SUPPLEMENTATION
  5. CALCIUM [Concomitant]
     Indication: MINERAL SUPPLEMENTATION
  6. VITAMIN SUPPLEMENT [Concomitant]
     Indication: VITAMIN SUPPLEMENTATION

REACTIONS (6)
  - Diarrhoea [Not Recovered/Not Resolved]
  - Abdominal pain [Not Recovered/Not Resolved]
  - Proctalgia [Not Recovered/Not Resolved]
  - Asthenia [Not Recovered/Not Resolved]
  - Fatigue [Not Recovered/Not Resolved]
  - Haematochezia [Unknown]
